FAERS Safety Report 7339420-4 (Version None)
Quarter: 2011Q1

REPORT INFORMATION
  Report Type: 
  Country: None (occurrence: None)
  Receive Date: 20110308
  Receipt Date: 20101210
  Transmission Date: 20110831
  Serious: No
  Sender: FDA-Public Use
  Company Number: US-AMGEN-USASP2010008760

PATIENT
  Sex: Female

DRUGS (2)
  1. CALCIUM                            /00108001/ [Concomitant]
  2. PROLIA [Suspect]
     Indication: PRODUCT USED FOR UNKNOWN INDICATION
     Dosage: UNK

REACTIONS (3)
  - MALAISE [None]
  - MOBILITY DECREASED [None]
  - FATIGUE [None]
